FAERS Safety Report 5218777-4 (Version None)
Quarter: 2007Q1

REPORT INFORMATION
  Report Type: 
  Country: None (occurrence: None)
  Receive Date: 20070123
  Receipt Date: 20070110
  Transmission Date: 20070707
  Serious: Yes (Life-Threatening)
  Sender: FDA-Public Use
  Company Number: 02100-USA-07-0003

PATIENT

DRUGS (1)
  1. PLETAL [Suspect]
     Dosage: DF ORAL
     Route: 048

REACTIONS (1)
  - TACHYCARDIA [None]
